FAERS Safety Report 19313373 (Version 1)
Quarter: 2021Q2

REPORT INFORMATION
  Report Type: Spontaneous
  Country: US (occurrence: US)
  Receive Date: 20210527
  Receipt Date: 20210527
  Transmission Date: 20210717
  Serious: Yes (Hospitalization)
  Sender: FDA-Public Use
  Company Number: None

PATIENT
  Age: 14 Year
  Sex: Female
  Weight: 45.8 kg

DRUGS (5)
  1. PREDNISOLONE. [Suspect]
     Active Substance: PREDNISOLONE
     Dates: end: 20210505
  2. ONCASPAR [Suspect]
     Active Substance: PEGASPARGASE
     Dates: end: 20210423
  3. VINCRISTINE SULFATE. [Suspect]
     Active Substance: VINCRISTINE SULFATE
     Dates: end: 20210505
  4. CYTARABINE. [Suspect]
     Active Substance: CYTARABINE
     Dates: end: 20210419
  5. DAUNORUBICIN [Suspect]
     Active Substance: DAUNORUBICIN
     Dates: end: 20210512

REACTIONS (6)
  - Pulmonary mass [None]
  - Weight decreased [None]
  - Sinusitis fungal [None]
  - Phaeohyphomycosis [None]
  - Hyperglycaemia [None]
  - Fusarium infection [None]

NARRATIVE: CASE EVENT DATE: 20210505
